FAERS Safety Report 7360543-8 (Version None)
Quarter: 2011Q1

REPORT INFORMATION
  Report Type: 
  Country: None (occurrence: None)
  Receive Date: 20110310
  Receipt Date: 20110228
  Transmission Date: 20110831
  Serious: Yes (Hospitalization)
  Sender: FDA-Public Use
  Company Number: 027333

PATIENT
  Sex: Female
  Weight: 105 kg

DRUGS (12)
  1. MELOXICAM [Concomitant]
  2. PARACETAMOL [Concomitant]
  3. METFORMIN HCL [Concomitant]
  4. DIAMICRON [Concomitant]
  5. CERTOLIZUMAB PEGOL (CERTOLIZUMAB PEGOL) [Suspect]
     Indication: RHEUMATOID ARTHRITIS
     Dosage: SEE IMAGE
     Route: 058
     Dates: start: 20060428, end: 20081205
  6. CERTOLIZUMAB PEGOL (CERTOLIZUMAB PEGOL) [Suspect]
     Indication: RHEUMATOID ARTHRITIS
     Dosage: SEE IMAGE
     Route: 058
     Dates: start: 20081219, end: 20100910
  7. CERTOLIZUMAB PEGOL (CERTOLIZUMAB PEGOL) [Suspect]
     Indication: RHEUMATOID ARTHRITIS
     Dosage: SEE IMAGE
     Route: 058
     Dates: start: 20050429, end: 20060413
  8. CRESTOR [Concomitant]
  9. LEXAPRO [Concomitant]
  10. CIMZIA [Concomitant]
  11. FOLIC ACID [Concomitant]
  12. METHOTREXATE [Concomitant]

REACTIONS (3)
  - ULCER [None]
  - CELLULITIS [None]
  - SCAR [None]
